FAERS Safety Report 7100168-2 (Version None)
Quarter: 2010Q4

REPORT INFORMATION
  Report Type: 
  Country: None (occurrence: None)
  Receive Date: 20101112
  Receipt Date: 20100705
  Transmission Date: 20110411
  Serious: No
  Sender: FDA-Public Use
  Company Number: A0870244A

PATIENT
  Sex: Male

DRUGS (2)
  1. COREG [Suspect]
     Dosage: 10MG PER DAY
     Route: 048
  2. CARVEDILOL [Suspect]
     Dosage: 6.25MG TWICE PER DAY
     Route: 048

REACTIONS (4)
  - DRUG ADMINISTRATION ERROR [None]
  - DRUG INEFFECTIVE [None]
  - HEART RATE INCREASED [None]
  - TREMOR [None]
